FAERS Safety Report 5482500-9 (Version None)
Quarter: 2007Q4

REPORT INFORMATION
  Report Type: 
  Country: None (occurrence: None)
  Receive Date: 20071011
  Receipt Date: 20071009
  Transmission Date: 20080405
  Serious: Yes (Hospitalization)
  Sender: FDA-Public Use
  Company Number: MX-BRISTOL-MYERS SQUIBB COMPANY-13934377

PATIENT
  Age: 66 Year
  Sex: Female

DRUGS (5)
  1. BLINDED: ABATACEPT [Suspect]
     Indication: RHEUMATOID ARTHRITIS
     Route: 042
     Dates: start: 20050514
  2. BLINDED: PLACEBO [Suspect]
     Indication: RHEUMATOID ARTHRITIS
     Route: 042
     Dates: start: 20050514
  3. METHOTREXATE [Suspect]
     Indication: RHEUMATOID ARTHRITIS
     Dates: start: 20030710, end: 20071003
  4. CAPTOPRIL [Concomitant]
     Dates: start: 20050310
  5. DICLOFENAC SODIUM [Concomitant]
     Dates: start: 20050310

REACTIONS (2)
  - ANAEMIA [None]
  - BONE MARROW TOXICITY [None]
